FAERS Safety Report 13908421 (Version 1)
Quarter: 2017Q3

REPORT INFORMATION
  Report Type: Spontaneous
  Country: US (occurrence: US)
  Receive Date: 20170826
  Receipt Date: 20170826
  Transmission Date: 20171127
  Serious: Yes (Hospitalization, Other)
  Sender: FDA-Public Use
  Company Number: US-IMPAX LABORATORIES, INC-2017-IPXL-02482

PATIENT
  Age: 42 Year
  Sex: Female

DRUGS (5)
  1. OXYCODONE [Suspect]
     Active Substance: OXYCODONE
     Indication: OVERDOSE
     Dosage: UNK
     Route: 065
  2. DICYCLOMINE                        /00068601/ [Suspect]
     Active Substance: DICYCLOMINE HYDROCHLORIDE
     Indication: OVERDOSE
     Dosage: UNK
     Route: 065
  3. ACEPROMAZINE [Suspect]
     Active Substance: ACEPROMAZINE
     Indication: OVERDOSE
     Dosage: UNK
     Route: 065
  4. BUSPIRONE HYDROCHLORIDE. [Suspect]
     Active Substance: BUSPIRONE HYDROCHLORIDE
     Indication: OVERDOSE
     Dosage: UNK
     Route: 065
  5. DEXEDRINE SPANSULE [Suspect]
     Active Substance: DEXTROAMPHETAMINE SULFATE
     Indication: OVERDOSE
     Dosage: UNK
     Route: 065

REACTIONS (7)
  - Unresponsive to stimuli [Recovering/Resolving]
  - Renal failure [Recovered/Resolved]
  - Rhabdomyolysis [Recovering/Resolving]
  - Septic shock [Unknown]
  - Overdose [Unknown]
  - Hypothermia [Recovering/Resolving]
  - Neuroleptic malignant syndrome [Recovering/Resolving]
